FAERS Safety Report 5687301-4 (Version None)
Quarter: 2008Q1

REPORT INFORMATION
  Report Type: 
  Country: None (occurrence: None)
  Receive Date: 20080328
  Receipt Date: 20061120
  Transmission Date: 20080703
  Serious: No
  Sender: FDA-Public Use
  Company Number: US-BAYER-US-2006-036255

PATIENT
  Age: 23 Year
  Sex: Female
  Weight: 48 kg

DRUGS (2)
  1. MIRENA [Suspect]
     Indication: CONTRACEPTION
     Route: 015
     Dates: start: 20050815
  2. VALTREX [Concomitant]
     Indication: HERPES VIRUS INFECTION

REACTIONS (3)
  - ABDOMINAL PAIN [None]
  - AMENORRHOEA [None]
  - METRORRHAGIA [None]
